FAERS Safety Report 15548066 (Version 27)
Quarter: 2022Q2

REPORT INFORMATION
  Report Type: Spontaneous
  Country: GB (occurrence: GB)
  Receive Date: 20181024
  Receipt Date: 20220502
  Transmission Date: 20220721
  Serious: Yes (Death, Life-Threatening, Hospitalization, Disabling, Other)
  Sender: FDA-Public Use
  Company Number: PHHY2018GB118917

PATIENT
  Age: 47 Year
  Sex: Female

DRUGS (35)
  1. CLOZARIL [Suspect]
     Active Substance: CLOZAPINE
     Indication: Blood cholesterol increased
     Dosage: 200 MG, QD (PM)
     Route: 048
     Dates: start: 20170317, end: 20180928
  2. CLOZARIL [Suspect]
     Active Substance: CLOZAPINE
     Indication: Schizophrenia
     Dosage: 200 MG, QD
     Route: 048
     Dates: start: 20180928
  3. CLOZARIL [Suspect]
     Active Substance: CLOZAPINE
     Dosage: 10 MG, QD
     Route: 048
     Dates: end: 20180928
  4. CLOZARIL [Suspect]
     Active Substance: CLOZAPINE
     Dosage: 100 MG, QD
     Route: 048
     Dates: end: 20180928
  5. LOSARTAN POTASSIUM [Suspect]
     Active Substance: LOSARTAN POTASSIUM
     Indication: Hypertension
     Dosage: 200 MG, QD
     Route: 048
     Dates: start: 20170317, end: 20180928
  6. LOSARTAN POTASSIUM [Suspect]
     Active Substance: LOSARTAN POTASSIUM
     Indication: Schizophrenia
     Dosage: 100 MG, QD
     Route: 048
     Dates: end: 20180928
  7. EZETIMIBE [Suspect]
     Active Substance: EZETIMIBE
     Indication: Hypercholesterolaemia
     Dosage: 10 MG, QD
     Route: 048
     Dates: end: 20180928
  8. EZETIMIBE [Suspect]
     Active Substance: EZETIMIBE
     Indication: Blood cholesterol increased
     Dosage: 10 MG, QD
     Route: 048
  9. EZETIMIBE [Suspect]
     Active Substance: EZETIMIBE
     Dosage: 10 MG, QD
     Route: 048
  10. EZETIMIBE [Suspect]
     Active Substance: EZETIMIBE
     Dosage: 10 MG, QD
     Route: 048
  11. FELODIPINE [Suspect]
     Active Substance: FELODIPINE
     Indication: Hypertension
     Dosage: 10 MG, QD
     Route: 048
     Dates: end: 20180928
  12. LANSOPRAZOLE [Suspect]
     Active Substance: LANSOPRAZOLE
     Indication: Blood cholesterol increased
     Dosage: 30 MG, QD
     Route: 065
     Dates: end: 20180928
  13. LANSOPRAZOLE [Suspect]
     Active Substance: LANSOPRAZOLE
     Indication: Blood cholesterol increased
     Dosage: 30 MG, QD
     Route: 065
     Dates: end: 20180928
  14. LANSOPRAZOLE [Suspect]
     Active Substance: LANSOPRAZOLE
     Indication: Gastrooesophageal reflux disease
     Dosage: 40 MG, QD
     Route: 065
     Dates: end: 20180928
  15. LANSOPRAZOLE [Suspect]
     Active Substance: LANSOPRAZOLE
     Dosage: 40 MG, QD
     Route: 065
  16. LANSOPRAZOLE [Suspect]
     Active Substance: LANSOPRAZOLE
     Dosage: 40 MG, QD
     Route: 048
  17. PRAVASTATIN [Suspect]
     Active Substance: PRAVASTATIN
     Indication: Depression
     Dosage: 50 MG, QD
     Route: 048
     Dates: start: 201709
  18. PRAVASTATIN [Suspect]
     Active Substance: PRAVASTATIN
     Indication: Blood cholesterol increased
     Dosage: 40 MG, (40 MG, PM, QHS)
     Route: 048
     Dates: end: 20180928
  19. PRAVASTATIN [Suspect]
     Active Substance: PRAVASTATIN
     Dosage: 40 MG, QD (M QHS)
     Route: 048
  20. PRAVASTATIN [Suspect]
     Active Substance: PRAVASTATIN
     Dosage: 40 MG, QD
     Route: 048
  21. PRAVASTATIN [Suspect]
     Active Substance: PRAVASTATIN
     Dosage: 40 MG, (40 MG, PM, QHS UNIT DOSE: 40 MG)
     Route: 048
     Dates: end: 20180928
  22. AMLODIPINE [Suspect]
     Active Substance: AMLODIPINE BESYLATE
     Indication: Hypertension
     Dosage: 100 MG, QD
     Route: 048
     Dates: start: 20180928, end: 20180928
  23. SERTRALINE [Suspect]
     Active Substance: SERTRALINE HYDROCHLORIDE
     Indication: Depression
     Dosage: 50 MG, QD AM
     Route: 048
     Dates: start: 201709, end: 20180928
  24. HUMALOG MIX50/50 [Suspect]
     Active Substance: INSULIN LISPRO
     Indication: Diabetes mellitus
     Dosage: 120 IU, TID,60 IU ALSO RECEIVED
     Route: 048
     Dates: end: 20180928
  25. HUMALOG MIX50/50 [Suspect]
     Active Substance: INSULIN LISPRO
     Dosage: 360 IU, QD, (120 IU, TID)
     Route: 048
     Dates: end: 20180928
  26. HUMALOG MIX50/50 [Suspect]
     Active Substance: INSULIN LISPRO
     Dosage: 180 IU, QD (60 IU, TID)
     Route: 048
     Dates: end: 20180928
  27. HUMALOG MIX50/50 [Suspect]
     Active Substance: INSULIN LISPRO
     Dosage: UNK
     Route: 065
  28. HUMALOG MIX50/50 [Suspect]
     Active Substance: INSULIN LISPRO
     Dosage: 360 IU, QD
     Route: 048
  29. HUMALOG MIX50/50 [Suspect]
     Active Substance: INSULIN LISPRO
     Dosage: 180 IU, QD, (60 IU, TID)
     Route: 048
     Dates: end: 20180928
  30. HUMALOG MIX50/50 [Suspect]
     Active Substance: INSULIN LISPRO
     Dosage: 120 IU, TID (120 INTERNATIONAL UNIT, 3 TIMES A DAY)
     Route: 048
     Dates: end: 20180928
  31. HUMALOG MIX50/50 [Suspect]
     Active Substance: INSULIN LISPRO
     Dosage: 120 IU, TID, (60 IU ALSO RECEIVED)
     Route: 048
     Dates: end: 20180928
  32. HUMALOG MIX50/50 [Suspect]
     Active Substance: INSULIN LISPRO
     Dosage: 360 IU, QD, (360 IU, QD)
     Route: 048
  33. HUMALOG MIX50/50 [Suspect]
     Active Substance: INSULIN LISPRO
     Dosage: 60 IU, TID (180 INTERNATIONAL UNIT, QD)
     Route: 048
     Dates: end: 20180928
  34. HUMALOG MIX50/50 [Suspect]
     Active Substance: INSULIN LISPRO
     Dosage: UNK
     Route: 065
  35. HUMALOG MIX50/50 [Suspect]
     Active Substance: INSULIN LISPRO
     Dosage: 360 IU, QD (120 IU, TID,60 IU)
     Route: 048
     Dates: start: 20180928

REACTIONS (9)
  - Multiple organ dysfunction syndrome [Fatal]
  - Pneumonia [Fatal]
  - Loss of consciousness [Fatal]
  - Incorrect route of product administration [Fatal]
  - Medication error [Fatal]
  - Intentional product misuse [Fatal]
  - Off label use [Fatal]
  - Overdose [Fatal]
  - Drug abuse [Unknown]

NARRATIVE: CASE EVENT DATE: 20180101
